FAERS Safety Report 10380906 (Version 1)
Quarter: 2014Q3

REPORT INFORMATION
  Report Type: Spontaneous
  Country: US (occurrence: None)
  Receive Date: 20140808
  Receipt Date: 20140808
  Transmission Date: 20150326
  Serious: Yes (Hospitalization)
  Sender: FDA-Public Use
  Company Number: SYM-2014-23716

PATIENT
  Sex: Male

DRUGS (21)
  1. LAMICTAL [Suspect]
     Active Substance: LAMOTRIGINE
     Indication: CONVULSION
  2. TOPIRAMATE (TOPIRAMATE) [Suspect]
     Active Substance: TOPIRAMATE
     Indication: CONVULSION
  3. VIMPAT [Suspect]
     Active Substance: LACOSAMIDE
     Indication: CONVULSION
     Dosage: 2 TABLETS IN THE MORNING AND 3 AT NIGHT
  4. DILANTIN [Suspect]
     Active Substance: PHENYTOIN
     Indication: CONVULSION
     Dosage: 2 CAPSULES DAILY
  5. DEPAKOTE [Suspect]
     Active Substance: DIVALPROEX SODIUM
     Indication: CONVULSION
  6. GABITRIL [Suspect]
     Active Substance: TIAGABINE HYDROCHLORIDE
     Indication: CONVULSION
  7. TEGRETOL [Suspect]
     Active Substance: CARBAMAZEPINE
     Indication: CONVULSION
  8. DEPAKENE [Suspect]
     Active Substance: VALPROIC ACID
     Indication: CONVULSION
  9. NEURONTIN [Suspect]
     Active Substance: GABAPENTIN
     Indication: CONVULSION
     Dosage: 3 CAPSULES DAILY
  10. TOPAMAX [Suspect]
     Active Substance: TOPIRAMATE
     Indication: CONVULSION
  11. KEPPRA [Suspect]
     Active Substance: LEVETIRACETAM
     Indication: CONVULSION
  12. ZONEGRAN [Suspect]
     Active Substance: ZONISAMIDE
     Indication: CONVULSION
     Dosage: 4 CAPSULES DAILY
  13. PHENOBARBITAL (PHENOBARBITAL) [Suspect]
     Active Substance: PHENOBARBITAL
     Indication: CONVULSION
  14. FELBAMATE. [Suspect]
     Active Substance: FELBAMATE
     Indication: CONVULSION
  15. LYRICA [Suspect]
     Active Substance: PREGABALIN
     Indication: CONVULSION
  16. VALPROIC ACID (VALPROIC ACID) [Suspect]
     Active Substance: VALPROIC ACID
     Indication: CONVULSION
  17. PREGABALIN (PREGABALIN) [Suspect]
     Active Substance: PREGABALIN
     Indication: CONVULSION
  18. MYSOLINE [Suspect]
     Active Substance: PRIMIDONE
     Indication: CONVULSION
  19. VALIUM [Suspect]
     Active Substance: DIAZEPAM
     Indication: CONVULSION
  20. CARBAMAZEPINE (CARBAMAZEPINE) [Suspect]
     Active Substance: CARBAMAZEPINE
     Indication: CONVULSION
  21. LEVETIRACETAM (LEVETIRACETAM) [Suspect]
     Active Substance: LEVETIRACETAM
     Indication: CONVULSION

REACTIONS (11)
  - Rib fracture [None]
  - Laceration [None]
  - Lower limb fracture [None]
  - Clavicle fracture [None]
  - Spinal compression fracture [None]
  - Convulsion [None]
  - Joint injury [None]
  - Ligament sprain [None]
  - Foot fracture [None]
  - Facial bones fracture [None]
  - Road traffic accident [None]
